FAERS Safety Report 8193814-6 (Version None)
Quarter: 2012Q1

REPORT INFORMATION
  Report Type: 
  Country: None (occurrence: None)
  Receive Date: 20120308
  Receipt Date: 20120305
  Transmission Date: 20120608
  Serious: Yes (Death, Hospitalization)
  Sender: FDA-Public Use
  Company Number: PHHO2012IT000757

PATIENT
  Sex: Female
  Weight: 103 kg

DRUGS (4)
  1. LDK378 [Suspect]
     Indication: NON-SMALL CELL LUNG CANCER
     Dosage: 750 MG, UNK
     Route: 048
     Dates: start: 20111219, end: 20120102
  2. DEXAMETHASONE [Suspect]
     Indication: METASTASES TO CENTRAL NERVOUS SYSTEM
     Dosage: 64 MG, QD
     Route: 048
     Dates: start: 20110701, end: 20111229
  3. METFORMIN HCL [Concomitant]
     Indication: DIABETES MELLITUS
     Dosage: 200 MG, QD
     Route: 048
     Dates: start: 20111230, end: 20120102
  4. DEXAMETHASONE [Suspect]
     Dosage: 8 MG, QD
     Route: 048
     Dates: start: 20111230, end: 20120103

REACTIONS (5)
  - ANAEMIA [None]
  - SOMNOLENCE [None]
  - HYPERGLYCAEMIA [None]
  - THROMBOCYTOPENIA [None]
  - SEPSIS [None]
